FAERS Safety Report 17252271 (Version 1)
Quarter: 2020Q1

REPORT INFORMATION
  Report Type: Spontaneous
  Country: CN (occurrence: CN)
  Receive Date: 20200109
  Receipt Date: 20200109
  Transmission Date: 20200409
  Serious: Yes (Other)
  Sender: FDA-Public Use
  Company Number: CN-ASTRAZENECA-2020SE02761

PATIENT
  Age: 23897 Day
  Sex: Female
  Weight: 90 kg

DRUGS (5)
  1. PULMICORT RESPULES [Suspect]
     Active Substance: BUDESONIDE
     Indication: ASTHMA
     Dosage: 2 ML OR 1 MG TWO TIMES A DAY
     Route: 055
     Dates: start: 20191127, end: 20191128
  2. SODIUM CHLORIDE. [Concomitant]
     Active Substance: SODIUM CHLORIDE
     Indication: MUSCLE SPASMS
     Dates: start: 20191127, end: 20191129
  3. IPRATROPIUM BROMIDE. [Suspect]
     Active Substance: IPRATROPIUM BROMIDE
     Indication: ASTHMA
     Route: 055
     Dates: start: 20191127, end: 20191128
  4. DOXOFYLLINE [Suspect]
     Active Substance: DOXOFYLLINE
     Indication: ASTHMA
     Route: 042
     Dates: start: 20191127, end: 20191128
  5. SODIUM CHLORIDE. [Concomitant]
     Active Substance: SODIUM CHLORIDE
     Indication: MUSCLE SPASMS
     Dates: start: 20191127, end: 20191129

REACTIONS (1)
  - Supraventricular extrasystoles [Unknown]

NARRATIVE: CASE EVENT DATE: 20191129
